FAERS Safety Report 6865126-1 (Version None)
Quarter: 2010Q3

REPORT INFORMATION
  Report Type: 
  Country: None (occurrence: None)
  Receive Date: 20100721
  Receipt Date: 20080618
  Transmission Date: 20110219
  Serious: No
  Sender: FDA-Public Use
  Company Number: US-PFIZER INC-2008033578

PATIENT
  Sex: Male
  Weight: 68.2 kg

DRUGS (1)
  1. CHANTIX [Suspect]
     Indication: SMOKING CESSATION THERAPY
     Dates: start: 20080404, end: 20080408

REACTIONS (3)
  - AGITATION [None]
  - FLAT AFFECT [None]
  - VISUAL IMPAIRMENT [None]
